FAERS Safety Report 8484075-9 (Version None)
Quarter: 2012Q3

REPORT INFORMATION
  Report Type: 
  Country: None (occurrence: None)
  Receive Date: 20120703
  Receipt Date: 20120627
  Transmission Date: 20120928
  Serious: Yes (Death, Hospitalization, Other)
  Sender: FDA-Public Use
  Company Number: US-ELI_LILLY_AND_COMPANY-US201202003202

PATIENT
  Sex: Female
  Weight: 55.8 kg

DRUGS (17)
  1. DULCOLAX [Concomitant]
     Indication: CONSTIPATION
     Dosage: 10 MG, PRN
     Route: 054
  2. COLACE [Concomitant]
     Dosage: 100 MG, EACH MORNING
     Route: 048
  3. KLONOPIN [Concomitant]
     Dosage: 1 UNK, UNK
  4. VITAMIN B-12 [Concomitant]
     Dosage: 1000 UG, UNK
     Route: 030
     Dates: start: 20111206
  5. PROCHLORPERAZINE MALEATE [Concomitant]
     Indication: NAUSEA
     Dosage: 5 MG, EVERY 6 HRS PRN
     Route: 048
  6. KLOR-CON M20 [Concomitant]
     Dosage: 20 MEQ, QD
     Route: 048
  7. ALIMTA [Suspect]
     Indication: NON-SMALL CELL LUNG CANCER METASTATIC
     Dosage: 700 MG, EVERY THREE WEEKS
     Route: 042
     Dates: start: 20111206, end: 20120206
  8. DUONEB [Concomitant]
     Indication: DYSPNOEA
     Dosage: UNK, EVERY 8 HRS PRN
     Route: 055
  9. DEXAMETHASONE [Concomitant]
     Dosage: 4 MG, BID
     Route: 048
     Dates: start: 20111207
  10. ATIVAN [Concomitant]
     Indication: ANXIETY
     Dosage: 1 MG, EVERY 4 HRS PRN
  11. MILK OF MAGNESIA TAB [Concomitant]
     Indication: CONSTIPATION
     Dosage: 30 CC, PRN
     Route: 048
  12. DILAUDID [Concomitant]
     Indication: PAIN
     Dosage: 2 - 4 MG, EVERY 4 HRS PRN
  13. SPIRIVA [Concomitant]
     Dosage: UNK, EACH MORNING
     Route: 055
  14. FOLIC ACID [Concomitant]
     Dosage: 1 MG, EACH MORNING
     Route: 048
     Dates: start: 20111206
  15. SENNA-S                            /01035001/ [Concomitant]
     Dosage: 8.6/50 MG, EACH MORNING
     Route: 048
  16. FENTANYL CITRATE [Concomitant]
     Dosage: 75 UG/HR PATCH, Q72 HRS
     Route: 062
  17. COUMADIN [Concomitant]
     Dosage: 5 MG, QD

REACTIONS (4)
  - PULMONARY INFARCTION [None]
  - NEOPLASM PROGRESSION [None]
  - PULMONARY EMBOLISM [None]
  - DEEP VEIN THROMBOSIS [None]
